FAERS Safety Report 21300968 (Version 1)
Quarter: 2022Q3

REPORT INFORMATION
  Report Type: Spontaneous
  Country: US (occurrence: US)
  Receive Date: 20220907
  Receipt Date: 20220907
  Transmission Date: 20221027
  Serious: Yes (Death, Other)
  Sender: FDA-Public Use
  Company Number: US-BRISTOL-MYERS SQUIBB COMPANY-2022-101892

PATIENT
  Age: 47 Year
  Sex: Female

DRUGS (2)
  1. OPDIVO [Suspect]
     Active Substance: NIVOLUMAB
     Indication: Malignant melanoma
     Dosage: 56 MG EVERY 3  WEEKS FOR OPDIVO,ROUTE OFADMINISTRATION: INFUSION,JULY? 5TH 2022 OR FEBRUARY 02ND? 20
     Route: 065
  2. YERVOY [Suspect]
     Active Substance: IPILIMUMAB
     Indication: Malignant melanoma
     Dosage: ROUTE OF ADMINISTRATION: INFUSION, 168.6 MG EVERY 3 WEEKS FOR YERVOY
     Route: 065

REACTIONS (1)
  - Death [Fatal]

NARRATIVE: CASE EVENT DATE: 20220718
